FAERS Safety Report 9189832 (Version 1)
Quarter: 2013Q1

REPORT INFORMATION
  Report Type: Spontaneous
  Country: ES (occurrence: None)
  Receive Date: 20130322
  Receipt Date: 20130322
  Transmission Date: 20140127
  Serious: Yes (Hospitalization)
  Sender: FDA-Public Use
  Company Number: SYM-2013-01773

PATIENT
  Age: 67 Year
  Sex: Male

DRUGS (9)
  1. 5-FU [Suspect]
     Indication: COLORECTAL CANCER METASTATIC
     Dosage: 1900 MG/M2, EVERY OTHER WEEK, INTRAVENOUS DRIP
     Route: 041
     Dates: start: 20121106, end: 20121107
  2. AFLIBERCEPT [Suspect]
     Dosage: 2 MG/KG, EVERY OTHER WEEK, INTRAVENOUS DRIP
     Route: 041
     Dates: start: 20120613, end: 20120613
  3. IRINOTECAN [Suspect]
     Indication: COLORECTAL CANCER METASTATIC
     Dosage: 800 MG/M2, EVERY OTHER WEEK, INTRAVENOUS DRIP
     Route: 041
     Dates: start: 20121106, end: 20121106
  4. LEUCOVORIN [Suspect]
     Indication: COLORECTAL CANCER METASTATIC
     Dosage: 200 MG/M2, EVERY OTHER WEEK, INTRAVENOUS DRIP
     Route: 041
     Dates: start: 20121106, end: 20121107
  5. LOSARTAN (LOSARTAN) [Concomitant]
  6. DEXAMETHASONE (DEXAMETHASONE) [Concomitant]
  7. GRANISETRON (GRANISETRON) [Concomitant]
  8. LOPERAMIDE (LOPERAMIDE) [Concomitant]
  9. ATROPINE (ATROPINE) [Concomitant]

REACTIONS (2)
  - Respiratory failure [None]
  - Bronchospasm [None]
